FAERS Safety Report 5300284-1 (Version None)
Quarter: 2007Q2

REPORT INFORMATION
  Report Type: 
  Country: None (occurrence: None)
  Receive Date: 20070418
  Receipt Date: 20070406
  Transmission Date: 20071010
  Serious: Yes (Other)
  Sender: FDA-Public Use
  Company Number: US-AMGEN-US208137

PATIENT
  Sex: Female
  Weight: 98 kg

DRUGS (5)
  1. PROCRIT [Suspect]
     Indication: MYELODYSPLASTIC SYNDROME
     Route: 058
     Dates: start: 20050902, end: 20061106
  2. TYLENOL [Concomitant]
  3. COLACE [Concomitant]
  4. IRON [Concomitant]
     Route: 048
  5. SENOKOT [Concomitant]

REACTIONS (1)
  - APLASIA PURE RED CELL [None]
